FAERS Safety Report 4591329-5 (Version None)
Quarter: 2005Q1

REPORT INFORMATION
  Report Type: 
  Country: None (occurrence: None)
  Receive Date: 20050218
  Receipt Date: 20050207
  Transmission Date: 20050727
  Serious: Yes (Hospitalization)
  Sender: FDA-Public Use
  Company Number: 2005013129

PATIENT
  Age: 34 Year
  Sex: Female
  Weight: 60.3284 kg

DRUGS (2)
  1. DOSTINEX [Suspect]
     Indication: HYPERPROLACTINAEMIA
     Dosage: (500 MCG,WEEKLY)
     Dates: start: 20040301, end: 20041201
  2. BROMOCRIPTINE MESYLATE [Concomitant]

REACTIONS (3)
  - ABORTION SPONTANEOUS [None]
  - BLIGHTED OVUM [None]
  - DRUG EXPOSURE DURING PREGNANCY [None]
